FAERS Safety Report 7535784-7 (Version None)
Quarter: 2011Q2

REPORT INFORMATION
  Report Type: 
  Country: None (occurrence: None)
  Receive Date: 20110609
  Receipt Date: 20110602
  Transmission Date: 20111010
  Serious: Yes (Other)
  Sender: FDA-Public Use
  Company Number: US-ABBOTT-11P-163-0730401-00

PATIENT
  Sex: Male

DRUGS (1)
  1. HUMIRA [Suspect]
     Indication: PSORIASIS
     Dates: start: 20100501, end: 20110401

REACTIONS (4)
  - TRANSIENT ISCHAEMIC ATTACK [None]
  - PULMONARY EMBOLISM [None]
  - DRUG INEFFECTIVE [None]
  - MYOCARDIAL INFARCTION [None]
